FAERS Safety Report 7041182-5 (Version None)
Quarter: 2010Q4

REPORT INFORMATION
  Report Type: 
  Country: None (occurrence: None)
  Receive Date: 20101013
  Receipt Date: 20101005
  Transmission Date: 20110411
  Serious: Yes (Other)
  Sender: FDA-Public Use
  Company Number: US-GENZYME-CAMP-1000870

PATIENT
  Sex: Female

DRUGS (6)
  1. CAMPATH [Suspect]
     Indication: CHRONIC LYMPHOCYTIC LEUKAEMIA
     Dosage: 3 MG, UNK
     Dates: start: 20100615
  2. CAMPATH [Suspect]
     Dosage: 10 MG, UNK
     Dates: start: 20100616
  3. CAMPATH [Suspect]
     Dosage: 30 MG, UNK
     Dates: start: 20100618, end: 20100628
  4. CAMPATH [Suspect]
     Dosage: UNK
     Dates: start: 20100706, end: 20100719
  5. CAMPATH [Suspect]
     Dosage: 3 MG, UNK
     Dates: start: 20100727
  6. CAMPATH [Suspect]
     Dosage: 10 MG, UNK

REACTIONS (3)
  - PLATELET COUNT DECREASED [None]
  - PYREXIA [None]
  - WHITE BLOOD CELL COUNT DECREASED [None]
